FAERS Safety Report 5425962-5 (Version None)
Quarter: 2007Q3

REPORT INFORMATION
  Report Type: 
  Country: None (occurrence: None)
  Receive Date: 20070827
  Receipt Date: 20070816
  Transmission Date: 20080115
  Serious: Yes (Other)
  Sender: FDA-Public Use
  Company Number: GB-BAYER-200714803GDS

PATIENT
  Age: 47 Year
  Sex: Male

DRUGS (5)
  1. CIPROFLOXACIN [Suspect]
     Indication: EPIDIDYMAL INFECTION
     Route: 048
  2. CLOZAPINE [Interacting]
     Indication: SCHIZOPHRENIA, PARANOID TYPE
     Route: 065
  3. CLOZAPINE [Interacting]
     Route: 065
  4. AMISULPRIDE [Concomitant]
     Indication: DRUG USE FOR UNKNOWN INDICATION
     Route: 065
  5. LORAZEPAM [Concomitant]
     Indication: DRUG USE FOR UNKNOWN INDICATION
     Route: 065

REACTIONS (2)
  - ANTIPSYCHOTIC DRUG LEVEL ABOVE THERAPEUTIC [None]
  - NO ADVERSE REACTION [None]
